FAERS Safety Report 20167186 (Version 1)
Quarter: 2021Q4

REPORT INFORMATION
  Report Type: Spontaneous
  Country: US (occurrence: None)
  Receive Date: 20211208
  Receipt Date: 20211208
  Transmission Date: 20220303
  Serious: No
  Sender: FDA-Public Use
  Company Number: None

PATIENT
  Age: 79 Year
  Sex: Male
  Weight: 65.25 kg

DRUGS (19)
  1. CAPECITABINE [Suspect]
     Active Substance: CAPECITABINE
     Indication: Colon cancer
     Dosage: OTHER FREQUENCY : BID FOR 14/21 DAYS;?
     Route: 048
     Dates: start: 20211025, end: 20211207
  2. Acetaminophen-Codeine 300-30mg [Concomitant]
  3. AMLODIPINE [Concomitant]
     Active Substance: AMLODIPINE BESYLATE
  4. BASAGLAR KWIKPEN [Concomitant]
     Active Substance: INSULIN GLARGINE
  5. CALCITRIOL [Concomitant]
     Active Substance: CALCITRIOL
  6. Cyanocobalamin 1000mcg [Concomitant]
  7. DIGOXIN [Concomitant]
  8. ELIQUIS [Concomitant]
  9. FAMOTIDINE [Concomitant]
  10. FINASTERIDE [Concomitant]
  11. GLIMEPIRIDE [Concomitant]
  12. Isosorbide mononitrate ER [Concomitant]
  13. LORATADINE [Concomitant]
  14. METOCLOPRAMIDE [Concomitant]
  15. NITROSTAT [Concomitant]
  16. PANTOPRAZOLE [Concomitant]
  17. RISPERIDONE [Concomitant]
  18. ROSUVASTATIN [Concomitant]
  19. MONTELUKAST [Concomitant]

REACTIONS (2)
  - Dehydration [None]
  - Illness [None]

NARRATIVE: CASE EVENT DATE: 20211208
